FAERS Safety Report 4788531-6 (Version None)
Quarter: 2005Q4

REPORT INFORMATION
  Report Type: 
  Country: None (occurrence: None)
  Receive Date: 20051005
  Receipt Date: 20051005
  Transmission Date: 20060501
  Serious: Yes (Disabling)
  Sender: FDA-Public Use
  Company Number: None

PATIENT
  Age: 69 Year
  Sex: Female
  Weight: 68.0396 kg

DRUGS (10)
  1. CYTARABINE [Suspect]
     Indication: ACUTE MYELOID LEUKAEMIA
     Dosage: 2535 MG IV Q 12 H
     Route: 042
     Dates: start: 20050208
  2. CYTARABINE [Suspect]
     Indication: ACUTE MYELOID LEUKAEMIA
     Dosage: 2535 MG IV Q 12 H
     Route: 042
     Dates: start: 20050210
  3. CYTARABINE [Suspect]
     Indication: ACUTE MYELOID LEUKAEMIA
     Dosage: 2535 MG IV Q 12 H
     Route: 042
     Dates: start: 20050212
  4. DEXAMETHASONE [Concomitant]
  5. IBUPROFEN [Concomitant]
  6. METOPROLOL [Concomitant]
  7. LORAZEPAM [Concomitant]
  8. PROCHLORPERAZINE [Concomitant]
  9. SERTRALINE HCL [Concomitant]
  10. ONDANSETRON [Concomitant]

REACTIONS (4)
  - BALANCE DISORDER [None]
  - CEREBELLAR SYNDROME [None]
  - DIPLOPIA [None]
  - DYSSTASIA [None]
